FAERS Safety Report 18565261 (Version 1)
Quarter: 2020Q4

REPORT INFORMATION
  Report Type: Spontaneous
  Country: HU (occurrence: HU)
  Receive Date: 20201201
  Receipt Date: 20201201
  Transmission Date: 20210114
  Serious: Yes (Hospitalization)
  Sender: FDA-Public Use
  Company Number: HU-MYLANLABS-2020M1098480

PATIENT
  Age: 6 Decade
  Sex: Male

DRUGS (7)
  1. CRIZOTINIB [Suspect]
     Active Substance: CRIZOTINIB
     Indication: LUNG ADENOCARCINOMA STAGE III
     Dosage: 2 X 250MG
     Route: 065
     Dates: start: 201505
  2. DOCETAXEL. [Suspect]
     Active Substance: DOCETAXEL
     Indication: LUNG ADENOCARCINOMA STAGE III
     Dosage: 75 MILLIGRAM/SQ. METER
     Route: 065
     Dates: start: 201502
  3. GEMCITABINE. [Concomitant]
     Active Substance: GEMCITABINE
     Indication: LUNG ADENOCARCINOMA STAGE III
     Dosage: 1200 MILLIGRAM/SQ. METER
     Route: 065
     Dates: start: 201502
  4. PEMETREXED. [Concomitant]
     Active Substance: PEMETREXED
     Indication: LUNG ADENOCARCINOMA STAGE III
     Dosage: 500 MILLIGRAM/SQ. METER
     Route: 065
     Dates: start: 201502
  5. CERITINIB [Concomitant]
     Active Substance: CERITINIB
     Indication: LUNG ADENOCARCINOMA STAGE III
     Dosage: 450 MILLIGRAM, QD
     Route: 065
     Dates: start: 201511
  6. CISPLATIN. [Suspect]
     Active Substance: CISPLATIN
     Indication: LUNG ADENOCARCINOMA STAGE III
     Route: 065
     Dates: start: 201502
  7. NIVOLUMAB [Suspect]
     Active Substance: NIVOLUMAB
     Indication: LUNG ADENOCARCINOMA STAGE III
     Dosage: 240 MILLIGRAM, BIWEEKLY
     Route: 065
     Dates: start: 201511

REACTIONS (2)
  - Drug resistance [Unknown]
  - Drug hypersensitivity [Unknown]

NARRATIVE: CASE EVENT DATE: 2015
